FAERS Safety Report 4686020-0 (Version None)
Quarter: 2005Q2

REPORT INFORMATION
  Report Type: 
  Country: None (occurrence: None)
  Receive Date: 20050606
  Receipt Date: 20050524
  Transmission Date: 20051028
  Serious: Yes (Hospitalization)
  Sender: FDA-Public Use
  Company Number: 2005-126348-NL

PATIENT
  Age: 31 Year
  Sex: Female

DRUGS (1)
  1. MENOTROPINS [Suspect]

REACTIONS (10)
  - ABDOMINAL PAIN LOWER [None]
  - ABORTION THREATENED [None]
  - BLOOD PRESSURE DECREASED [None]
  - DRUG EXPOSURE DURING PREGNANCY [None]
  - ECTOPIC PREGNANCY [None]
  - HAEMORRHAGIC ASCITES [None]
  - LOSS OF CONSCIOUSNESS [None]
  - OVARIAN NEOPLASM [None]
  - SWELLING [None]
  - VAGINAL HAEMORRHAGE [None]
